FAERS Safety Report 9314456 (Version 3)
Quarter: 2013Q2

REPORT INFORMATION
  Report Type: Spontaneous
  Country: GB (occurrence: None)
  Receive Date: 20130524
  Receipt Date: 20130612
  Transmission Date: 20140414
  Serious: Yes (Hospitalization)
  Sender: FDA-Public Use
  Company Number: AG-2013-1719

PATIENT
  Age: 68 Year
  Sex: Male
  Weight: 104 kg

DRUGS (16)
  1. CHLORAMBUCIL [Suspect]
     Indication: CHRONIC LYMPHOCYTIC LEUKAEMIA
     Route: 048
     Dates: start: 20130312
  2. OFATUMUMAB [Suspect]
     Indication: CHRONIC LYMPHOCYTIC LEUKAEMIA
     Route: 042
     Dates: start: 20130312
  3. PREDNISOLONE (PREDNISOLONE) [Suspect]
     Indication: CHRONIC LYMPHOCYTIC LEUKAEMIA
     Route: 048
     Dates: start: 20130311
  4. PARACETAMOL (PARACETAMOL) [Concomitant]
  5. CHLORPHENIRAMINE ( CHLORPHENAMINE) [Concomitant]
  6. ALLOPURINOL [Concomitant]
  7. METOCLOPRAMIDE [Concomitant]
  8. ACICLOVIR [Concomitant]
  9. TAMSULOSIN HYDROCHLORIDE [Concomitant]
  10. CILOSTAZOL [Concomitant]
  11. QUINAPRIL [Concomitant]
  12. TOLTERODINE 1-TARTRATE [Concomitant]
  13. ASPIRIN (ACETYLSALICYLIC ACID) [Concomitant]
  14. COD LIVER OIL [Concomitant]
  15. ENOXAPARIN (ENOXAPARIN) [Concomitant]
  16. SIMVASTATIN (SIMVASTATIN) [Concomitant]

REACTIONS (4)
  - Chest pain [None]
  - Dyspnoea [None]
  - Febrile neutropenia [None]
  - Lung infection [None]
